FAERS Safety Report 21831176 (Version 2)
Quarter: 2023Q1

REPORT INFORMATION
  Report Type: Spontaneous
  Country: JP (occurrence: JP)
  Receive Date: 20230106
  Receipt Date: 20230213
  Transmission Date: 20230417
  Serious: Yes (Life-Threatening, Hospitalization, Other)
  Sender: FDA-Public Use
  Company Number: JP-PFIZER INC-PV202300001888

PATIENT
  Age: 61 Year
  Sex: Male

DRUGS (6)
  1. PACLITAXEL [Suspect]
     Active Substance: PACLITAXEL
     Indication: Tongue cancer metastatic
     Dosage: 80 MG/M2, WEEKLY, 8 COURSES, CYCLIC
  2. PACLITAXEL [Suspect]
     Active Substance: PACLITAXEL
     Indication: Tongue cancer recurrent
  3. NIVOLUMAB [Suspect]
     Active Substance: NIVOLUMAB
     Indication: Tongue cancer metastatic
  4. NIVOLUMAB [Suspect]
     Active Substance: NIVOLUMAB
     Indication: Tongue cancer recurrent
  5. CETUXIMAB [Suspect]
     Active Substance: CETUXIMAB
     Indication: Tongue cancer metastatic
     Dosage: 400 MG/M2, WEEKLY, FOR THE FIRST COURSE
  6. CETUXIMAB [Suspect]
     Active Substance: CETUXIMAB
     Indication: Tongue cancer recurrent
     Dosage: 250 MG/M2, WEEKLYFOR THE SECOND AND SUBSEQUENT COURSES

REACTIONS (10)
  - Immune-mediated adverse reaction [Unknown]
  - Abdominal distension [Recovering/Resolving]
  - Nausea [Recovering/Resolving]
  - Diarrhoea [Recovering/Resolving]
  - Stoma site discharge [Recovering/Resolving]
  - Hypoproteinaemia [Unknown]
  - Vomiting [Unknown]
  - Mucosal inflammation [Unknown]
  - Intestinal perforation [Unknown]
  - Off label use [Unknown]
